FAERS Safety Report 22635510 (Version 1)
Quarter: 2023Q2

REPORT INFORMATION
  Report Type: Spontaneous
  Country: RU (occurrence: RU)
  Receive Date: 20230623
  Receipt Date: 20230623
  Transmission Date: 20230722
  Serious: Yes (Life-Threatening)
  Sender: FDA-Public Use
  Company Number: RU-BAYER-2023A088000

PATIENT
  Age: 49 Year
  Sex: Female
  Weight: 57 kg

DRUGS (2)
  1. ULTRAVIST [Suspect]
     Active Substance: IOPROMIDE
     Indication: Computerised tomogram
     Dosage: 100 ML, ONCE
     Route: 042
     Dates: start: 20230614, end: 20230614
  2. ULTRAVIST [Suspect]
     Active Substance: IOPROMIDE
     Indication: Ovarian germ cell cancer

REACTIONS (8)
  - Contrast media allergy [Recovering/Resolving]
  - Dry mouth [Recovering/Resolving]
  - Anxiety [Recovering/Resolving]
  - Pruritus [None]
  - Erythema [None]
  - Rash papular [None]
  - Hypoaesthesia [None]
  - Hypertension [None]

NARRATIVE: CASE EVENT DATE: 20230614
